FAERS Safety Report 14620374 (Version 1)
Quarter: 2018Q1

REPORT INFORMATION
  Report Type: Spontaneous
  Country: US (occurrence: US)
  Receive Date: 20180309
  Receipt Date: 20180309
  Transmission Date: 20180509
  Serious: Yes (Other)
  Sender: FDA-Public Use
  Company Number: US-TEVA-2018-US-869200

PATIENT
  Sex: Male

DRUGS (1)
  1. PREDNISONE. [Suspect]
     Active Substance: PREDNISONE
     Indication: BRONCHITIS
     Route: 065
     Dates: start: 201801

REACTIONS (7)
  - Decreased appetite [Unknown]
  - Weight decreased [Unknown]
  - Hypertension [Unknown]
  - Anxiety [Unknown]
  - Chest discomfort [Unknown]
  - Feeling jittery [Unknown]
  - Dyspnoea [Unknown]
